FAERS Safety Report 8831621 (Version 1)
Quarter: 2012Q4

REPORT INFORMATION
  Report Type: 
  Country: US (occurrence: US)
  Receive Date: 20121009
  Receipt Date: 20121009
  Transmission Date: 20130627
  Serious: No
  Sender: FDA-Public Use
  Company Number: US-ASTRAZENECA-2012SE75455

PATIENT
  Age: 65 Year
  Sex: Female
  Weight: 50.8 kg

DRUGS (5)
  1. TENORMIN [Suspect]
     Indication: MYOCARDIAL INFARCTION
     Route: 048
     Dates: start: 201209, end: 20120927
  2. TENORMIN [Suspect]
     Indication: SUPRAVENTRICULAR TACHYCARDIA
     Route: 048
     Dates: start: 201209, end: 20120927
  3. TENORMIN [Suspect]
     Indication: SUPRAVENTRICULAR EXTRASYSTOLES
     Route: 048
     Dates: start: 201209, end: 20120927
  4. VERAPAMIL [Suspect]
     Route: 065
  5. XOPENEX [Concomitant]
     Indication: RESPIRATORY DISORDER

REACTIONS (4)
  - Lip swelling [Recovering/Resolving]
  - Swollen tongue [Recovering/Resolving]
  - Dry mouth [Unknown]
  - Alopecia [Unknown]
